FAERS Safety Report 5249656-4 (Version None)
Quarter: 2007Q1

REPORT INFORMATION
  Report Type: 
  Country: None (occurrence: None)
  Receive Date: 20070228
  Receipt Date: 20060619
  Transmission Date: 20070707
  Serious: No
  Sender: FDA-Public Use
  Company Number: US-GLAXOSMITHKLINE-A0609572A

PATIENT
  Sex: Male

DRUGS (8)
  1. IMITREX [Suspect]
     Indication: MIGRAINE
     Dosage: 6MG AS REQUIRED
     Route: 058
  2. BUTALBITAL [Concomitant]
  3. QUETIAPINE FUMARATE [Concomitant]
  4. AMITRIPTYLINE HCL [Concomitant]
  5. TRAMADOL HCL [Concomitant]
  6. CELEBREX [Concomitant]
  7. TEMAZEPAM [Concomitant]
  8. LAMISIL [Concomitant]

REACTIONS (2)
  - ADVERSE EVENT [None]
  - DRUG ADMINISTRATION ERROR [None]
